FAERS Safety Report 10449783 (Version 1)
Quarter: 2014Q3

REPORT INFORMATION
  Report Type: Spontaneous
  Country: US (occurrence: None)
  Receive Date: 20140911
  Receipt Date: 20140911
  Transmission Date: 20150326
  Serious: No
  Sender: FDA-Public Use
  Company Number: None

PATIENT
  Age: 7 Year
  Sex: Male
  Weight: 19.5 kg

DRUGS (1)
  1. METHYLPHENIDATE 54 MG MALLINCKRODT [Suspect]
     Active Substance: METHYLPHENIDATE
     Indication: DRUG THERAPY
     Dosage: 1 PILL ONCE DAILY TKANE BY MOUTH
     Route: 048
     Dates: start: 20140809, end: 20140909

REACTIONS (7)
  - Rebound effect [None]
  - Mood swings [None]
  - Social problem [None]
  - Disturbance in attention [None]
  - Drug effect decreased [None]
  - Product substitution issue [None]
  - Educational problem [None]
